FAERS Safety Report 23020288 (Version 4)
Quarter: 2024Q2

REPORT INFORMATION
  Report Type: Spontaneous
  Country: TR (occurrence: TR)
  Receive Date: 20231003
  Receipt Date: 20240502
  Transmission Date: 20240716
  Serious: Yes (Other)
  Sender: FDA-Public Use
  Company Number: TR-PFIZER INC-202300314421

PATIENT
  Age: 66 Year
  Sex: Male

DRUGS (1)
  1. SUNITINIB MALATE [Suspect]
     Active Substance: SUNITINIB MALATE
     Indication: Renal cell carcinoma
     Dosage: 50 MG/DAY 2 WEEKS ON/1 WEEK OFF SCHEDULE

REACTIONS (3)
  - Autoimmune haemolytic anaemia [Recovered/Resolved]
  - Fatigue [Unknown]
  - Mucosal inflammation [Unknown]
